FAERS Safety Report 10906232 (Version 1)
Quarter: 2015Q1

REPORT INFORMATION
  Report Type: Spontaneous
  Country: CA (occurrence: CA)
  Receive Date: 20150311
  Receipt Date: 20150311
  Transmission Date: 20150721
  Serious: Yes (Other)
  Sender: FDA-Public Use
  Company Number: CA-009507513-1309CAN012925

PATIENT
  Age: 59 Year
  Sex: Male

DRUGS (3)
  1. PEGINTERFERON ALFA-2A [Suspect]
     Active Substance: PEGINTERFERON ALFA-2A
     Indication: PRODUCT USED FOR UNKNOWN INDICATION
     Dosage: 180 MICROGRAM, 1 EVERY 1 WEEK
     Route: 058
  2. VICTRELIS [Suspect]
     Active Substance: BOCEPREVIR
     Indication: HEPATITIS C
     Dosage: 800 MG, 3 EVERY 1 DAY
     Route: 048
     Dates: start: 20130605
  3. RIBAVIRIN. [Suspect]
     Active Substance: RIBAVIRIN
     Indication: PRODUCT USED FOR UNKNOWN INDICATION
     Dosage: 500 MG, 2 EVERY 1 DAYS
     Route: 048

REACTIONS (5)
  - Haemoglobin abnormal [Unknown]
  - Platelet disorder [Unknown]
  - Throat irritation [Unknown]
  - Haemoptysis [Unknown]
  - Dysphagia [Unknown]

NARRATIVE: CASE EVENT DATE: 20130710
